FAERS Safety Report 22319051 (Version 1)
Quarter: 2023Q2

REPORT INFORMATION
  Report Type: Spontaneous
  Country: EC (occurrence: EC)
  Receive Date: 20230515
  Receipt Date: 20230515
  Transmission Date: 20230722
  Serious: Yes (Death, Life-Threatening, Hospitalization, Other)
  Sender: FDA-Public Use
  Company Number: EC-MLMSERVICE-2023042742536831

PATIENT
  Age: 63 Year
  Sex: Male

DRUGS (3)
  1. METHOTREXATE [Suspect]
     Active Substance: METHOTREXATE
     Indication: Still^s disease
     Dosage: CHRONICALLY TREATED
  2. PREDNISONE [Suspect]
     Active Substance: PREDNISONE
     Indication: Still^s disease
     Route: 048
  3. ETANERCEPT [Suspect]
     Active Substance: ETANERCEPT
     Indication: Still^s disease
     Dosage: CHRONICALLY TREATED- 2 CYCLES.?CUMULATIVE DOSE: 2 CYCLICAL

REACTIONS (6)
  - Brain abscess [Fatal]
  - Lung consolidation [Fatal]
  - Ileus paralytic [Fatal]
  - Multiple organ dysfunction syndrome [Fatal]
  - Cerebral nocardiosis [Fatal]
  - Hemiparesis [Fatal]
